FAERS Safety Report 5317808-0 (Version None)
Quarter: 2007Q2

REPORT INFORMATION
  Report Type: 
  Country: None (occurrence: None)
  Receive Date: 20070502
  Receipt Date: 20070502
  Transmission Date: 20071010
  Serious: Yes (Life-Threatening, Hospitalization)
  Sender: FDA-Public Use
  Company Number: None

PATIENT
  Age: 27 Year
  Sex: Female
  Weight: 70 kg

DRUGS (4)
  1. GENTAMICIN [Suspect]
     Indication: CHORIOAMNIONITIS
     Dosage: IV
     Route: 042
     Dates: start: 20070204, end: 20070204
  2. ADVAIR DISKUS 100/50 [Concomitant]
  3. PRENATAL VITAMINS [Concomitant]
  4. PREDNISONE TAB [Concomitant]

REACTIONS (2)
  - ANAPHYLACTIC REACTION [None]
  - INFUSION RELATED REACTION [None]
